FAERS Safety Report 7169571-9 (Version None)
Quarter: 2010Q4

REPORT INFORMATION
  Report Type: 
  Country: None (occurrence: None)
  Receive Date: 20101217
  Receipt Date: 20101214
  Transmission Date: 20110411
  Serious: Yes (Other)
  Sender: FDA-Public Use
  Company Number: US-PFIZER INC-2010172020

PATIENT
  Sex: Male
  Weight: 188.66 kg

DRUGS (1)
  1. VIAGRA [Suspect]
     Dosage: 200 MG, 6X/DAY
     Route: 048
     Dates: start: 20101001, end: 20101212

REACTIONS (3)
  - CIRCUMSTANCE OR INFORMATION CAPABLE OF LEADING TO MEDICATION ERROR [None]
  - ERECTILE DYSFUNCTION [None]
  - INCORRECT DOSE ADMINISTERED [None]
